FAERS Safety Report 10472304 (Version 1)
Quarter: 2014Q3

REPORT INFORMATION
  Report Type: Spontaneous
  Country: DE (occurrence: DE)
  Receive Date: 20140924
  Receipt Date: 20140924
  Transmission Date: 20150326
  Serious: Yes (Other)
  Sender: FDA-Public Use
  Company Number: DE-TEVA-509847GER

PATIENT
  Age: 40 Year
  Sex: Female

DRUGS (7)
  1. METFORMIN [Suspect]
     Active Substance: METFORMIN HYDROCHLORIDE
     Indication: TYPE 2 DIABETES MELLITUS
     Dosage: 2000 MILLIGRAM DAILY; 2000 [MG/D ]
     Route: 048
     Dates: start: 20130310, end: 20130425
  2. VITAVERLAN [Concomitant]
     Indication: PROPHYLAXIS OF NEURAL TUBE DEFECT
     Dosage: .4 MILLIGRAM DAILY; 0.4 [MG/D ]
     Route: 048
  3. RAMIPRIL. [Suspect]
     Active Substance: RAMIPRIL
     Indication: HYPERTENSION
     Dosage: 10 MILLIGRAM DAILY; 10 [MG/D ]
     Route: 048
     Dates: start: 20130310, end: 20130425
  4. JANUVIA [Suspect]
     Active Substance: SITAGLIPTIN PHOSPHATE
     Indication: TYPE 2 DIABETES MELLITUS
     Dosage: 100 GRAM DAILY; 100 [MG/D ]
     Route: 048
     Dates: start: 20130310, end: 20130425
  5. L-THYROXIN [Concomitant]
     Active Substance: LEVOTHYROXINE SODIUM
     Indication: AUTOIMMUNE THYROIDITIS
     Dosage: 75 MICROGRAM DAILY; 75 [MICROG/D ]
     Route: 048
     Dates: start: 20130310, end: 20131113
  6. METOPROLOL [Concomitant]
     Active Substance: METOPROLOL
     Indication: HYPERTENSION
     Dosage: 95 MILLIGRAM DAILY; 95 [MG/D (2X47.5 MG/D) ]
     Route: 048
     Dates: start: 20130502, end: 20131113
  7. METHYLDOPA. [Concomitant]
     Active Substance: METHYLDOPA
     Indication: HYPERTENSION
     Dosage: 1000 MILLIGRAM DAILY; 1000 [MG/D (4X250 MG/D) ]
     Route: 048
     Dates: start: 20130502, end: 20131113

REACTIONS (1)
  - Polyhydramnios [Unknown]

NARRATIVE: CASE EVENT DATE: 2013
